FAERS Safety Report 9540525 (Version 2)
Quarter: 2013Q4

REPORT INFORMATION
  Report Type: Spontaneous
  Country: FR (occurrence: FR)
  Receive Date: 20130920
  Receipt Date: 20131007
  Transmission Date: 20140711
  Serious: Yes (Death)
  Sender: FDA-Public Use
  Company Number: FR-PFIZER INC-2013267687

PATIENT
  Age: 49 Year
  Sex: Female

DRUGS (11)
  1. EFFEXOR LP [Suspect]
     Dosage: UNK
     Route: 048
  2. ZYPREXA [Interacting]
     Dosage: UNK
     Route: 048
  3. LEPTICUR [Interacting]
     Dosage: UNK
     Route: 048
  4. DEPAKOTE [Interacting]
     Dosage: UNK
     Route: 048
  5. PRIMPERAN [Interacting]
     Dosage: UNK
     Route: 048
  6. LOXAPAC [Interacting]
     Dosage: UNK
     Route: 048
  7. OXYCONTIN [Interacting]
     Dosage: UNK
     Route: 048
  8. OXYNORM [Interacting]
     Dosage: UNK
     Route: 048
  9. LYSANXIA [Concomitant]
     Dosage: UNK
  10. INNOHEP [Concomitant]
     Dosage: UNK
  11. ARIMIDEX ^ASTRAZENECA^ [Concomitant]
     Dosage: UNK

REACTIONS (4)
  - Ileus [Fatal]
  - Gastrointestinal necrosis [Fatal]
  - Shock [Fatal]
  - Drug interaction [Fatal]
